FAERS Safety Report 4528760-X (Version None)
Quarter: 2004Q4

REPORT INFORMATION
  Report Type: 
  Country: None (occurrence: None)
  Receive Date: 20041216
  Receipt Date: 20040816
  Transmission Date: 20050328
  Serious: Yes (Hospitalization)
  Sender: FDA-Public Use
  Company Number: US-ROCHE-378005

PATIENT
  Age: 46 Year
  Sex: Male

DRUGS (6)
  1. PEGASYS [Suspect]
     Indication: HEPATITIS C
     Route: 058
     Dates: start: 20040604, end: 20040814
  2. COPEGUS [Suspect]
     Indication: HEPATITIS C
     Route: 048
     Dates: start: 20040604, end: 20040814
  3. EFFEXOR [Concomitant]
     Indication: DEPRESSION
     Dates: end: 20040814
  4. CLONAZEPAM [Concomitant]
     Dates: end: 20040814
  5. METHADONE HCL [Concomitant]
     Dates: end: 20040814
  6. MILK THISTLE [Concomitant]
     Dosage: HAD BEEN USED FOR THREE MONTHS SO FAR.

REACTIONS (7)
  - DYSPNOEA [None]
  - HYPOXIA [None]
  - PNEUMONIA ASPIRATION [None]
  - PULMONARY OEDEMA [None]
  - RESPIRATORY FAILURE [None]
  - SPUTUM ABNORMAL [None]
  - TROPONIN INCREASED [None]
